FAERS Safety Report 19651459 (Version 1)
Quarter: 2021Q3

REPORT INFORMATION
  Report Type: Spontaneous
  Country: ES (occurrence: ES)
  Receive Date: 20210803
  Receipt Date: 20210803
  Transmission Date: 20211014
  Serious: Yes (Life-Threatening, Other)
  Sender: FDA-Public Use
  Company Number: ES-ACCORD-234018

PATIENT
  Age: 10 Year
  Sex: Female
  Weight: 33 kg

DRUGS (1)
  1. ETOPOSIDE ACCORD [Suspect]
     Active Substance: ETOPOSIDE
     Indication: STEM CELL TRANSPLANT
     Route: 042
     Dates: start: 20210706, end: 20210706

REACTIONS (5)
  - Hypertension [Recovered/Resolved]
  - Tachycardia [Recovered/Resolved]
  - Peripheral vascular disorder [Recovered/Resolved]
  - Cyanosis [Recovered/Resolved]
  - Off label use [Unknown]

NARRATIVE: CASE EVENT DATE: 20210706
